FAERS Safety Report 10410474 (Version 3)
Quarter: 2014Q4

REPORT INFORMATION
  Report Type: Spontaneous
  Country: US (occurrence: US)
  Receive Date: 20140826
  Receipt Date: 20141015
  Transmission Date: 20150528
  Serious: Yes (Hospitalization, Other)
  Sender: FDA-Public Use
  Company Number: US-GLAXOSMITHKLINE-A1086437A

PATIENT
  Sex: Male

DRUGS (3)
  1. VENTOLIN [Suspect]
     Active Substance: ALBUTEROL SULFATE
     Indication: PRODUCT USED FOR UNKNOWN INDICATION
     Dosage: 90 MCG, UNKNOWN DOSING
     Route: 055
  2. ALBUTEROL SULFATE. [Suspect]
     Active Substance: ALBUTEROL SULFATE
     Indication: PRODUCT USED FOR UNKNOWN INDICATION
     Dosage: 1.25 MG/3 ML
     Route: 065
  3. LOVAZA [Suspect]
     Active Substance: OMEGA-3-ACID ETHYL ESTERS
     Indication: PRODUCT USED FOR UNKNOWN INDICATION
     Dosage: 1 GRAM, UNKNOWN DOSING.
     Route: 065

REACTIONS (11)
  - Loss of employment [Unknown]
  - Thrombosis [Unknown]
  - Depression [Unknown]
  - Deep vein thrombosis [Unknown]
  - Pulmonary thrombosis [Unknown]
  - Disability [Unknown]
  - Learning disorder [Unknown]
  - Seizure [Unknown]
  - Investigation [Unknown]
  - Asthma [Unknown]
  - Anxiety [Unknown]
